FAERS Safety Report 15172339 (Version 2)
Quarter: 2018Q3

REPORT INFORMATION
  Report Type: Spontaneous
  Country: BR (occurrence: BR)
  Receive Date: 20180720
  Receipt Date: 20180827
  Transmission Date: 20181010
  Serious: Yes (Hospitalization, Other)
  Sender: FDA-Public Use
  Company Number: BR-PFIZER INC-2018285422

PATIENT
  Age: 70 Year
  Sex: Female
  Weight: 55 kg

DRUGS (5)
  1. LIPITOR [Suspect]
     Active Substance: ATORVASTATIN CALCIUM
     Indication: BLOOD CHOLESTEROL INCREASED
     Dosage: 1 TABLET OF 10 MG AFTER DINNER
     Dates: start: 20000223
  2. CLOPIDOGREL [Concomitant]
     Active Substance: CLOPIDOGREL BISULFATE
     Dosage: UNK
  3. LIPITOR [Suspect]
     Active Substance: ATORVASTATIN CALCIUM
     Dosage: 1 TABLET OF 20 MG AFTER DINNER
  4. ROXFLAN [Concomitant]
     Active Substance: AMLODIPINE BESYLATE
     Dosage: UNK
  5. ATENOLOL. [Concomitant]
     Active Substance: ATENOLOL
     Dosage: UNK

REACTIONS (22)
  - Post procedural inflammation [Recovered/Resolved]
  - Diarrhoea [Recovered/Resolved]
  - Synovial cyst [Unknown]
  - Rhinitis allergic [Recovered/Resolved]
  - Ear infection [Recovered/Resolved]
  - Fall [Unknown]
  - Asphyxia [Recovered/Resolved]
  - Groin pain [Unknown]
  - Benign neoplasm of thyroid gland [Recovered/Resolved]
  - Haematoma [Unknown]
  - Lipoma of breast [Recovered/Resolved]
  - Cataract [Recovered/Resolved]
  - Rotavirus infection [Recovered/Resolved]
  - Dizziness [Recovered/Resolved]
  - Spinal fracture [Recovered/Resolved]
  - Incisional hernia [Recovered/Resolved]
  - Dengue fever [Recovered/Resolved]
  - Pain [Unknown]
  - Renal cyst [Not Recovered/Not Resolved]
  - Sarcoma [Unknown]
  - Neoplasm recurrence [Recovered/Resolved]
  - Cough [Recovered/Resolved]

NARRATIVE: CASE EVENT DATE: 20050811
